FAERS Safety Report 6190182-6 (Version None)
Quarter: 2009Q2

REPORT INFORMATION
  Report Type: 
  Country: None (occurrence: None)
  Receive Date: 20090514
  Receipt Date: 20090506
  Transmission Date: 20091009
  Serious: Yes (Hospitalization)
  Sender: FDA-Public Use
  Company Number: ES-ELI_LILLY_AND_COMPANY-ES200905001410

PATIENT
  Age: 60 Year
  Sex: Female

DRUGS (3)
  1. FORTEO [Suspect]
     Indication: OSTEOPOROSIS
     Dosage: 20 UG, UNK
     Dates: start: 20090101, end: 20090301
  2. FORTEO [Suspect]
     Dosage: 20 UG, UNK
     Dates: start: 20090101, end: 20090401
  3. FORTEO [Suspect]
     Dosage: 20 UG, UNK
     Dates: start: 20090401

REACTIONS (5)
  - BLOOD GLUCOSE DECREASED [None]
  - CARDIAC ARREST [None]
  - KIDNEY INFECTION [None]
  - PULMONARY OEDEMA [None]
  - TACHYCARDIA [None]
